FAERS Safety Report 4765377-6 (Version None)
Quarter: 2005Q3

REPORT INFORMATION
  Report Type: 
  Country: None (occurrence: None)
  Receive Date: 20050906
  Receipt Date: 20050822
  Transmission Date: 20060218
  Serious: Yes (Other)
  Sender: FDA-Public Use
  Company Number: 2005-0008646

PATIENT
  Age: 27 Year
  Sex: Female
  Weight: 62 kg

DRUGS (4)
  1. VIREAD [Suspect]
     Indication: HIV INFECTION
     Dosage: 300 MG, 1 IN 1 D, ORAL
     Route: 048
     Dates: start: 20050412, end: 20050615
  2. EMTRIVA [Concomitant]
  3. EFAVIRENZ (EFAVIRENZ) [Concomitant]
  4. BACTRIM [Concomitant]

REACTIONS (9)
  - ACIDOSIS [None]
  - ALANINE AMINOTRANSFERASE INCREASED [None]
  - ELECTROLYTE IMBALANCE [None]
  - HYPONATRAEMIA [None]
  - NOCTURIA [None]
  - POLYDIPSIA [None]
  - POLYURIA [None]
  - RENAL TUBULAR ACIDOSIS [None]
  - RENAL TUBULAR DISORDER [None]
